FAERS Safety Report 6070007-X (Version None)
Quarter: 2009Q1

REPORT INFORMATION
  Report Type: 
  Country: None (occurrence: None)
  Receive Date: 20090209
  Receipt Date: 20090128
  Transmission Date: 20090719
  Serious: Yes (Other)
  Sender: FDA-Public Use
  Company Number: PHHY2009BR03399

PATIENT

DRUGS (9)
  1. FORASEQ [Suspect]
     Indication: ASTHMA
     Dosage: UNK
  2. METICORTEN [Concomitant]
     Indication: ASTHMA
     Dosage: 1 DF, QD
     Route: 048
  3. ENALAPRIL [Concomitant]
     Indication: HYPERTENSION
     Dosage: 1 DF, QD
     Route: 048
  4. PAROXETINE HCL [Concomitant]
     Indication: ANXIETY
     Dosage: 1 DF, QD
     Route: 048
  5. RIVOTRIL [Concomitant]
     Indication: ANXIETY
     Dosage: 1 DF, UNK
     Route: 048
  6. OMEPRAZOLE [Concomitant]
     Indication: NAUSEA
     Dosage: 4 TABLETS A DAY
     Route: 048
  7. BEROTEC [Concomitant]
     Indication: ASTHMA
     Dosage: UNK
  8. BEROTEC [Concomitant]
     Dosage: UNK
  9. NIMESULIDE [Concomitant]

REACTIONS (6)
  - CEREBROVASCULAR ACCIDENT [None]
  - GENERAL PHYSICAL HEALTH DETERIORATION [None]
  - HYPERTENSION [None]
  - NAUSEA [None]
  - PAIN [None]
  - SWOLLEN TONGUE [None]
